FAERS Safety Report 7486737-9 (Version None)
Quarter: 2011Q2

REPORT INFORMATION
  Report Type: 
  Country: None (occurrence: None)
  Receive Date: 20110517
  Receipt Date: 20100601
  Transmission Date: 20111010
  Serious: No
  Sender: FDA-Public Use
  Company Number: US-NOVEN-ALL1-2010-03161

PATIENT

DRUGS (2)
  1. DAYTRANA [Suspect]
     Dosage: 10 MG, 1X/DAY:QD
     Route: 062
     Dates: start: 20100525
  2. KLONOPIN [Concomitant]
     Dosage: UNK, 1X/DAY:QD (AT BEDTIME)
     Route: 048
     Dates: start: 20070101

REACTIONS (4)
  - DRUG EFFECT INCREASED [None]
  - MOOD ALTERED [None]
  - NEGATIVISM [None]
  - APPLICATION SITE ERYTHEMA [None]
